FAERS Safety Report 11719903 (Version 1)
Quarter: 2015Q4

REPORT INFORMATION
  Report Type: Spontaneous
  Country: BR (occurrence: BR)
  Receive Date: 20151110
  Receipt Date: 20151110
  Transmission Date: 20160304
  Serious: Yes (Hospitalization, Other)
  Sender: FDA-Public Use
  Company Number: BR-SA-2015SA175746

PATIENT
  Age: 49 Year
  Sex: Female
  Weight: 52 kg

DRUGS (14)
  1. ERYTHROPOIETIN [Concomitant]
     Active Substance: ERYTHROPOIETIN
     Indication: PANCREATIC DISORDER
     Dosage: DOSE: 2 AMPOULES PER WEEK , DOSE ON TUESDAY, LATER SHE USES IT FOR TWO DAYS?ROUTE: IN THE BELLY
  2. NORIPURUM [Concomitant]
     Active Substance: IRON POLYMALTOSE
     Indication: ANAEMIA
     Route: 048
     Dates: start: 2013
  3. QUETROS [Concomitant]
     Active Substance: QUETIAPINE
     Indication: PSYCHOTIC DISORDER
     Route: 048
     Dates: start: 2014
  4. AAS INFANTIL [Concomitant]
     Active Substance: ASPIRIN
     Indication: THROMBOSIS PROPHYLAXIS
     Route: 048
     Dates: start: 2013
  5. LANTUS SOLOSTAR [Suspect]
     Active Substance: INSULIN GLARGINE
     Indication: HYPERGLYCAEMIA
     Dosage: ROUTE: IN THE ABDOMEN DOSE:40 UNIT(S)
  6. BENERVA [Concomitant]
     Active Substance: THIAMINE
     Indication: DIABETIC NEUROPATHY
     Route: 048
  7. PANTOPRAZOLE [Concomitant]
     Active Substance: PANTOPRAZOLE SODIUM
     Indication: ABDOMINAL DISCOMFORT
     Dosage: (SHE UNDERWENT ENDOSCOPY PRESENTED GASTRITIS AND ESOPHAGITIS
     Route: 048
     Dates: start: 2013
  8. SOLOSTAR [Concomitant]
     Active Substance: DEVICE
  9. CAPTOPRIL. [Concomitant]
     Active Substance: CAPTOPRIL
     Indication: BLOOD PRESSURE MEASUREMENT
     Dosage: SHE HAS VARIATION OF PRESSURE, ADMINISTERS HALF OF THE TABLET
     Route: 048
  10. LANTUS SOLOSTAR [Suspect]
     Active Substance: INSULIN GLARGINE
     Indication: HYPERGLYCAEMIA
     Dosage: DOSE: 34-36 U
     Route: 065
  11. TORVAL [Concomitant]
     Active Substance: VALPROIC ACID
     Indication: EMOTIONAL DISORDER
     Route: 048
     Dates: start: 2014
  12. SOLOSTAR [Concomitant]
     Active Substance: DEVICE
  13. QUETROS [Concomitant]
     Active Substance: QUETIAPINE
     Indication: INSOMNIA
     Route: 048
     Dates: start: 2014
  14. NOVORAPID [Concomitant]
     Active Substance: INSULIN ASPART
     Indication: BLOOD GLUCOSE INCREASED

REACTIONS (5)
  - Blood glucose decreased [Not Recovered/Not Resolved]
  - Hypoglycaemia [Not Recovered/Not Resolved]
  - Coma [Unknown]
  - Weight decreased [Unknown]
  - Blood glucose increased [Unknown]
